FAERS Safety Report 22293145 (Version 3)
Quarter: 2023Q4

REPORT INFORMATION
  Report Type: Spontaneous
  Country: US (occurrence: US)
  Receive Date: 20230508
  Receipt Date: 20231109
  Transmission Date: 20240110
  Serious: Yes (Other)
  Sender: FDA-Public Use
  Company Number: US-JNJFOC-20230508106

PATIENT
  Age: 5 Year
  Sex: Female

DRUGS (6)
  1. TYLENOL REGULAR STRENGTH [Suspect]
     Active Substance: ACETAMINOPHEN
     Indication: Pain
     Dosage: FROM UNSPECIFIED DATES IN JUL-2009 TO APR-2010, THE PATIENTS MOTHER TOOK TYLENOL REGULAR TABLETS 32
     Route: 064
     Dates: start: 200907, end: 201004
  2. TYLENOL REGULAR STRENGTH [Suspect]
     Active Substance: ACETAMINOPHEN
     Indication: Toothache
  3. TYLENOL EXTRA STRENGTH [Suspect]
     Active Substance: ACETAMINOPHEN
     Indication: Pain
     Dosage: FROM UNSPECIFIED DATES IN JUL-2009 TO APR-2010, THE PATIENTS MOTHER TOOK TYLENOL EXTRA STRENGTH TAB
     Route: 064
     Dates: start: 200907, end: 201004
  4. TYLENOL EXTRA STRENGTH [Suspect]
     Active Substance: ACETAMINOPHEN
     Indication: Toothache
  5. TYLENOL EXTRA STRENGTH [Suspect]
     Active Substance: ACETAMINOPHEN
     Indication: Pain
     Dosage: FROM UNSPECIFIED DATES IN JUL-2009 TO APR-2010, THE PATIENTS MOTHER TOOK TYLENOL EXTRA STRENGTH RAP
     Route: 064
     Dates: start: 200907, end: 201004
  6. TYLENOL EXTRA STRENGTH [Suspect]
     Active Substance: ACETAMINOPHEN
     Indication: Toothache

REACTIONS (3)
  - Autism spectrum disorder [Unknown]
  - Foetal exposure during pregnancy [Unknown]
  - Attention deficit hyperactivity disorder [Unknown]

NARRATIVE: CASE EVENT DATE: 20160323
